FAERS Safety Report 24897238 (Version 2)
Quarter: 2025Q1

REPORT INFORMATION
  Report Type: Spontaneous
  Country: US (occurrence: US)
  Receive Date: 20250129
  Receipt Date: 20250212
  Transmission Date: 20250409
  Serious: Yes (Other)
  Sender: TEVA
  Company Number: US-TEVA-VS-3289845

PATIENT
  Age: 68 Year
  Sex: Male

DRUGS (2)
  1. DOXORUBICIN [Suspect]
     Active Substance: DOXORUBICIN
     Indication: Neurofibrosarcoma
     Route: 065
     Dates: start: 202208, end: 202211
  2. IFOSFAMIDE [Suspect]
     Active Substance: IFOSFAMIDE
     Indication: Neurofibrosarcoma
     Route: 065
     Dates: start: 202208, end: 202211

REACTIONS (3)
  - Pancytopenia [Unknown]
  - Gastrointestinal haemorrhage [Unknown]
  - Drug ineffective [Unknown]
